FAERS Safety Report 6221385-X (Version None)
Quarter: 2009Q2

REPORT INFORMATION
  Report Type: 
  Country: None (occurrence: None)
  Receive Date: 20090610
  Receipt Date: 20090601
  Transmission Date: 20091009
  Serious: Yes (Other)
  Sender: FDA-Public Use
  Company Number: FR-BRISTOL-MYERS SQUIBB COMPANY-14648414

PATIENT
  Age: 38 Year
  Sex: Female

DRUGS (11)
  1. DIDANOSINE [Suspect]
     Indication: HIV INFECTION
  2. STAVUDINE [Suspect]
     Indication: HIV INFECTION
  3. EFAVIRENZ [Suspect]
     Indication: HIV INFECTION
  4. ZIDOVUDINE [Suspect]
     Indication: HIV INFECTION
     Dates: start: 19951001
  5. LAMIVUDINE [Suspect]
     Indication: HIV INFECTION
     Dosage: ALSO IN DEC-2005
     Dates: start: 19951001
  6. NEVIRAPINE [Suspect]
     Indication: HIV INFECTION
  7. TENOFOVIR [Suspect]
     Indication: HIV INFECTION
  8. ZALCITABINE [Suspect]
     Indication: HIV INFECTION
  9. ABACAVIR [Suspect]
     Indication: HIV INFECTION
     Dates: start: 20051201
  10. LOPINAVIR [Suspect]
     Indication: HIV INFECTION
  11. RITONAVIR [Suspect]
     Indication: HIV INFECTION

REACTIONS (2)
  - LIVER TRANSPLANT [None]
  - NODULAR REGENERATIVE HYPERPLASIA [None]
